FAERS Safety Report 10040820 (Version 1)
Quarter: 2014Q1

REPORT INFORMATION
  Report Type: Spontaneous
  Country: US (occurrence: None)
  Receive Date: 20140326
  Receipt Date: 20140326
  Transmission Date: 20141002
  Serious: Yes (Other)
  Sender: FDA-Public Use
  Company Number: None

PATIENT
  Age: 24 Year
  Sex: Female
  Weight: 52.16 kg

DRUGS (1)
  1. MIRVASO 0.33% GALDERMA LABORATORIES [Suspect]
     Indication: ROSACEA
     Dates: start: 20140325, end: 20140325

REACTIONS (3)
  - Erythema [None]
  - Condition aggravated [None]
  - Headache [None]
